FAERS Safety Report 4264016-0 (Version None)
Quarter: 2004Q1

REPORT INFORMATION
  Report Type: 
  Country: None (occurrence: None)
  Receive Date: 20040102
  Receipt Date: 20031219
  Transmission Date: 20041129
  Serious: Yes (Hospitalization)
  Sender: FDA-Public Use
  Company Number: FR_031103128

PATIENT
  Age: 70 Year
  Sex: Female

DRUGS (1)
  1. GEMZAR [Suspect]
     Indication: PANCREATIC CARCINOMA
     Dosage: 1000 MG/M2/OTHER
     Route: 050
     Dates: start: 20030701, end: 20030801

REACTIONS (5)
  - CATHETER RELATED COMPLICATION [None]
  - GASTROINTESTINAL TOXICITY [None]
  - PERICARDIAL EFFUSION [None]
  - PLEURAL EFFUSION [None]
  - SUPERIOR VENA CAVAL OCCLUSION [None]
